FAERS Safety Report 10163001 (Version 2)
Quarter: 2014Q2

REPORT INFORMATION
  Report Type: Other
  Country: FR (occurrence: FR)
  Receive Date: 20140509
  Receipt Date: 20140523
  Transmission Date: 20141212
  Serious: Yes (Hospitalization)
  Sender: FDA-Public Use
  Company Number: FR-OPTIMER-20140098

PATIENT
  Age: 87 Year
  Sex: Female

DRUGS (4)
  1. DIFICLIR [Suspect]
     Indication: CLOSTRIDIUM DIFFICILE COLITIS
     Dosage: 1 DF, BID
     Route: 048
     Dates: start: 20140321, end: 20140330
  2. OMNIPAQUE [Suspect]
     Indication: ABDOMEN SCAN
     Dosage: 90 ML, SINGLE
     Route: 042
     Dates: start: 20140319, end: 20140319
  3. FLAGYL [Concomitant]
     Indication: CLOSTRIDIUM DIFFICILE COLITIS
     Dosage: UNK
  4. DUPHALAC [Concomitant]
     Dosage: UNK
     Dates: start: 20140320

REACTIONS (1)
  - Blood creatinine increased [Recovered/Resolved]
